FAERS Safety Report 20804357 (Version 1)
Quarter: 2022Q2

REPORT INFORMATION
  Report Type: Spontaneous
  Country: CA (occurrence: CA)
  Receive Date: 20220509
  Receipt Date: 20220509
  Transmission Date: 20220720
  Serious: Yes (Hospitalization, Other)
  Sender: FDA-Public Use
  Company Number: CA-GLAXOSMITHKLINE-CA2022AMR073013

PATIENT
  Age: 30 Year
  Sex: Female

DRUGS (10)
  1. ACYCLOVIR [Suspect]
     Active Substance: ACYCLOVIR
     Indication: Premedication
     Dosage: 200 MG, BID
     Route: 048
  2. ACYCLOVIR [Suspect]
     Active Substance: ACYCLOVIR
     Dosage: 200 MG, BID
     Route: 048
  3. ALEMTUZUMAB [Suspect]
     Active Substance: ALEMTUZUMAB
     Indication: Relapsing-remitting multiple sclerosis
     Dosage: 12 MG, QD
  4. ALEMTUZUMAB [Suspect]
     Active Substance: ALEMTUZUMAB
     Dosage: 12 MG, QD
     Route: 041
  5. COVID-19 VACCINE NOS [Suspect]
     Active Substance: COVID-19 VACCINE NOS
     Indication: COVID-19 immunisation
     Dosage: UNK
     Route: 030
  6. METHYLPREDNISOLONE SODIUM SUCCINATE [Suspect]
     Active Substance: METHYLPREDNISOLONE SODIUM SUCCINATE
     Indication: Premedication
     Dosage: 1 G
     Route: 042
  7. ACETAMINOPHEN [Concomitant]
     Active Substance: ACETAMINOPHEN
     Indication: Premedication
     Dosage: UNK
     Route: 048
  8. ATIVAN [Concomitant]
     Active Substance: LORAZEPAM
     Indication: Sleep disorder
     Dosage: UNK
     Route: 048
  9. BENADRYL [Concomitant]
     Active Substance: DIPHENHYDRAMINE HYDROCHLORIDE
     Indication: Premedication
     Dosage: 25 MG
     Route: 048
  10. CIMETIDINE [Concomitant]
     Active Substance: CIMETIDINE
     Indication: Premedication
     Dosage: 200 MG/KG
     Route: 048

REACTIONS (91)
  - Abdominal distension [Unknown]
  - Abdominal pain [Unknown]
  - Abdominal pain lower [Unknown]
  - Anion gap decreased [Unknown]
  - Anxiety [Unknown]
  - Asthenia [Unknown]
  - Bacterial test positive [Unknown]
  - Band sensation [Unknown]
  - Basedow^s disease [Unknown]
  - Blood calcium decreased [Unknown]
  - Blood creatinine decreased [Unknown]
  - Blood urine present [Unknown]
  - Bradycardia [Unknown]
  - Chest pain [Unknown]
  - Cough [Unknown]
  - Culture urine positive [Unknown]
  - Cystitis [Unknown]
  - Decreased appetite [Unknown]
  - Dehydration [Unknown]
  - Dental caries [Unknown]
  - Depression [Unknown]
  - Drug exposure before pregnancy [Unknown]
  - Dry mouth [Unknown]
  - Dysuria [Unknown]
  - Ear pain [Unknown]
  - Emotional disorder [Unknown]
  - Eosinophil count increased [Unknown]
  - Fatigue [Unknown]
  - Feeling abnormal [Unknown]
  - Fibrin D dimer increased [Unknown]
  - Flushing [Unknown]
  - Frustration tolerance decreased [Unknown]
  - Gingival pain [Unknown]
  - Haematocrit increased [Unknown]
  - Haemoglobin increased [Unknown]
  - Headache [Unknown]
  - Hepatic infection [Unknown]
  - Hypersomnia [Unknown]
  - Hypoaesthesia [Unknown]
  - Hypotension [Unknown]
  - Ill-defined disorder [Unknown]
  - Increased appetite [Unknown]
  - Increased tendency to bruise [Unknown]
  - Influenza [Unknown]
  - Infrequent bowel movements [Unknown]
  - Insomnia [Unknown]
  - Limb discomfort [Unknown]
  - Lymphocyte count decreased [Unknown]
  - Malaise [Unknown]
  - Mean cell haemoglobin increased [Unknown]
  - Mean cell volume increased [Unknown]
  - Mobility decreased [Unknown]
  - Multiple sclerosis relapse [Unknown]
  - Muscle spasms [Unknown]
  - Muscle tightness [Unknown]
  - Muscular weakness [Unknown]
  - Nasopharyngitis [Unknown]
  - Nausea [Unknown]
  - Neutrophil count increased [Unknown]
  - Nitrite urine present [Unknown]
  - Oral pain [Unknown]
  - Oropharyngeal pain [Unknown]
  - Pain in extremity [Unknown]
  - Peripheral coldness [Unknown]
  - Pollakiuria [Unknown]
  - Poor peripheral circulation [Unknown]
  - Poor quality sleep [Unknown]
  - Post procedural contusion [Unknown]
  - Protein urine present [Unknown]
  - Pruritus [Unknown]
  - Red blood cell count decreased [Unknown]
  - Red cell distribution width decreased [Unknown]
  - Respiratory tract congestion [Unknown]
  - Rhinorrhoea [Unknown]
  - Sinus disorder [Unknown]
  - Skin discolouration [Unknown]
  - Specific gravity urine decreased [Unknown]
  - Stress [Unknown]
  - Swelling face [Unknown]
  - Thyroid hormones increased [Unknown]
  - Tremor [Unknown]
  - Urinary retention [Unknown]
  - Urinary tract infection [Unknown]
  - Urine abnormality [Unknown]
  - Urine ketone body present [Unknown]
  - Urine odour abnormal [Unknown]
  - Urobilinogen urine increased [Unknown]
  - Urticaria [Unknown]
  - Vomiting [Unknown]
  - Weight decreased [Unknown]
  - White blood cells urine positive [Unknown]
